FAERS Safety Report 24904175 (Version 1)
Quarter: 2025Q1

REPORT INFORMATION
  Report Type: Spontaneous
  Country: US (occurrence: US)
  Receive Date: 20250130
  Receipt Date: 20250130
  Transmission Date: 20250409
  Serious: Yes (Other)
  Sender: BAYER HEALTHCARE LLC
  Company Number: US-BAYER-2025A010069

PATIENT

DRUGS (1)
  1. ALEVE [Suspect]
     Active Substance: NAPROXEN SODIUM
     Indication: Pain

REACTIONS (4)
  - Renal disorder [Recovering/Resolving]
  - Bladder disorder [Recovering/Resolving]
  - Soft tissue disorder [Recovering/Resolving]
  - Product use issue [Unknown]
